FAERS Safety Report 24383127 (Version 3)
Quarter: 2025Q1

REPORT INFORMATION
  Report Type: Spontaneous
  Country: US (occurrence: US)
  Receive Date: 20241001
  Receipt Date: 20250221
  Transmission Date: 20250409
  Serious: No
  Sender: CATALYST PHARMA
  Company Number: US-CATALYST PHARMACEUTICALS-US-CATA-24-00414

PATIENT
  Age: 11 Year
  Sex: Male
  Weight: 54.422 kg

DRUGS (16)
  1. AGAMREE [Suspect]
     Active Substance: VAMOROLONE
     Indication: Duchenne muscular dystrophy
     Dosage: 6.7 ML  1 X A DAY, EVERY SINGLE DAY
     Route: 048
     Dates: start: 20240318, end: 20240514
  2. AGAMREE [Suspect]
     Active Substance: VAMOROLONE
     Dosage: 7.4 ML (296 MG) ONCE A DAY MONDAY TO FRIDAY
     Route: 048
     Dates: start: 20240515, end: 20240602
  3. AGAMREE [Suspect]
     Active Substance: VAMOROLONE
     Dosage: 7.4 ML (296 MG) ONCE A DAY MONDAY TO FRIDAY
     Route: 048
     Dates: start: 20240612, end: 2024
  4. AGAMREE [Suspect]
     Active Substance: VAMOROLONE
     Dosage: 7.4 ML (296 MG) ONCE A DAY MONDAY TO SATURDAY
     Route: 048
     Dates: start: 2024
  5. COENZYME Q10 [Concomitant]
     Active Substance: DIETARY SUPPLEMENT\UBIDECARENONE
     Indication: Cardiac disorder
     Dosage: 100 MG TWICE A DAY
     Route: 065
  6. COENZYME Q10 [Concomitant]
     Active Substance: DIETARY SUPPLEMENT\UBIDECARENONE
     Dosage: 400MG ONCE A DAY
     Route: 065
  7. KID^S PROBIOTIC [Concomitant]
     Indication: Gastrointestinal disorder prophylaxis
     Dosage: 1 X A WEEK
     Route: 065
  8. MAGNESIUM [Concomitant]
     Active Substance: MAGNESIUM
     Indication: Bone disorder
     Dosage: 200 MG A DAY
     Route: 065
  9. MAGNESIUM [Concomitant]
     Active Substance: MAGNESIUM
     Indication: Hypovitaminosis
     Dosage: 1500MG ONCE A DAY
     Route: 065
  10. VITAMIN D3 [Concomitant]
     Active Substance: CHOLECALCIFEROL
     Indication: Hypovitaminosis
     Dosage: 2500 UNITS TWICE A WEEK
     Route: 065
  11. VITAMIN D3 [Concomitant]
     Active Substance: CHOLECALCIFEROL
     Dosage: 15000 UNITS ONCE A DAY
     Route: 065
  12. VITAMIN B12 [Concomitant]
     Active Substance: CYANOCOBALAMIN
     Indication: Hypovitaminosis
     Dosage: 2.5MG ONCE A DAY
     Route: 065
  13. ADVIL [Concomitant]
     Active Substance: IBUPROFEN
     Indication: Pain
     Route: 065
  14. ADVIL [Concomitant]
     Active Substance: IBUPROFEN
     Indication: Pyrexia
  15. TYLENOL EXTRA STRENGTH [Concomitant]
     Active Substance: ACETAMINOPHEN
     Indication: Pain
     Route: 065
  16. TYLENOL EXTRA STRENGTH [Concomitant]
     Active Substance: ACETAMINOPHEN
     Indication: Pyrexia

REACTIONS (15)
  - Generalised oedema [Recovering/Resolving]
  - Retching [Not Recovered/Not Resolved]
  - Pyrexia [Recovering/Resolving]
  - Dysphagia [Recovering/Resolving]
  - Pain [Recovered/Resolved]
  - Constipation [Recovered/Resolved]
  - Weight increased [Not Recovered/Not Resolved]
  - Swelling face [Recovering/Resolving]
  - Purulence [Recovering/Resolving]
  - Illness [Recovering/Resolving]
  - Pharyngitis streptococcal [Recovering/Resolving]
  - Viral infection [Recovering/Resolving]
  - Diarrhoea [Recovered/Resolved]
  - Product use complaint [Unknown]
  - Off label use [Unknown]

NARRATIVE: CASE EVENT DATE: 20240301
